FAERS Safety Report 19142981 (Version 3)
Quarter: 2021Q2

REPORT INFORMATION
  Report Type: Spontaneous
  Country: GB (occurrence: GB)
  Receive Date: 20210416
  Receipt Date: 20210605
  Transmission Date: 20210717
  Serious: Yes (Hospitalization, Other)
  Sender: FDA-Public Use
  Company Number: GB-AUROBINDO-AUR-APL-2021-015420

PATIENT
  Age: 66 Year
  Sex: Female
  Weight: 90.4 kg

DRUGS (29)
  1. SODIUM CHLORIDE. [Suspect]
     Active Substance: SODIUM CHLORIDE
     Indication: MEDICATION DILUTION
     Dosage: 306 MILLILITER
     Route: 065
     Dates: start: 20210301
  2. MORPHINE SULFATE. [Suspect]
     Active Substance: MORPHINE SULFATE
     Indication: PAIN
     Dosage: 5 MILLIGRAM (10MG/5 ML)
     Route: 048
  3. CYANOCOBALAMIN. [Concomitant]
     Active Substance: CYANOCOBALAMIN
     Indication: VITAMIN B12 DEFICIENCY
     Dosage: 1 DOSAGE FORM, ONCE A DAY (1 TABLET)
     Route: 048
  4. DIAZEPAM. [Concomitant]
     Active Substance: DIAZEPAM
     Indication: ANXIETY
     Dosage: 2 MILLIGRAM (AS NECESSARY) (UPTO THREE TIMES A DAY, AS REQUIRED.)
     Route: 048
  5. ONDANSETRON [Suspect]
     Active Substance: ONDANSETRON
     Indication: PROPHYLAXIS OF NAUSEA AND VOMITING
     Dosage: 8 MILLIGRAM, TWO TIMES A DAY
     Route: 048
     Dates: start: 20210302, end: 20210303
  6. ZOMORPH [Suspect]
     Active Substance: MORPHINE SULFATE
     Indication: PAIN
     Dosage: 40 MILLIGRAM, TWO TIMES A DAY
     Route: 048
  7. METOCLOPRAMIDE. [Suspect]
     Active Substance: METOCLOPRAMIDE
     Indication: PROPHYLAXIS OF NAUSEA AND VOMITING
     Dosage: UPTO 3 TIMES A DAY, AS REQUIRED
     Route: 048
     Dates: start: 20210301
  8. PREGABALIN. [Concomitant]
     Active Substance: PREGABALIN
     Indication: NEURALGIA
     Dosage: 100 MILLIGRAM, ONCE A DAY
     Route: 048
  9. APIXABAN [Concomitant]
     Active Substance: APIXABAN
     Indication: ANTICOAGULANT THERAPY
     Dosage: 5 MILLIGRAM, TWO TIMES A DAY
     Route: 048
  10. PARACETAMOL [Suspect]
     Active Substance: ACETAMINOPHEN
     Dosage: UPTO FOUR TIMES, AS REQUIRED
     Route: 048
  11. ONDANSETRON [Suspect]
     Active Substance: ONDANSETRON
     Indication: PROPHYLAXIS OF NAUSEA AND VOMITING
  12. PARACETAMOL [Suspect]
     Active Substance: ACETAMINOPHEN
     Indication: PAIN
     Dosage: 1 GRAM ((UPTO FOUR TIMES, AS REQUIRED))
     Route: 048
  13. CARBOPLATIN. [Suspect]
     Active Substance: CARBOPLATIN
     Dosage: 500 MILLIGRAM (CYCLE 1 OF 3?WEEKLY REGIMEN)
     Route: 065
     Dates: start: 20210301
  14. GLUCOSE [Suspect]
     Active Substance: DEXTROSE
     Indication: MEDICATION DILUTION
     Dosage: 500 MILLILITER
     Route: 065
     Dates: start: 20210301
  15. DEXAMETHASONE. [Suspect]
     Active Substance: DEXAMETHASONE
     Indication: PROPHYLAXIS OF NAUSEA AND VOMITING
     Dosage: 3 MILLIGRAM, TWO TIMES A DAY
     Route: 048
     Dates: start: 20210302, end: 20210303
  16. DEXAMETHASONE. [Suspect]
     Active Substance: DEXAMETHASONE
     Indication: PROPHYLAXIS OF NAUSEA AND VOMITING
  17. MORPHINE SULFATE. [Suspect]
     Active Substance: MORPHINE SULFATE
     Dosage: 10MG/5 ML
     Route: 048
  18. DIAZEPAM. [Concomitant]
     Active Substance: DIAZEPAM
     Dosage: UPTO THREE TIMES A DAY, AS REQUIRED.
     Route: 048
  19. FOLIC ACID. [Concomitant]
     Active Substance: FOLIC ACID
     Route: 048
  20. SARS?COV?2 VACCINE [Concomitant]
     Indication: PRODUCT USED FOR UNKNOWN INDICATION
     Dosage: UNK
     Route: 065
  21. ZOMORPH [Suspect]
     Active Substance: MORPHINE SULFATE
     Dosage: 80 MILLIGRAM (40 MG, BID )
     Route: 048
  22. FOLIC ACID. [Concomitant]
     Active Substance: FOLIC ACID
     Indication: FOLATE DEFICIENCY
     Dosage: 5 MILLIGRAM, ONCE A DAY
     Route: 048
  23. GLUCOSE [Suspect]
     Active Substance: DEXTROSE
     Dosage: 550 MILLILITER
     Route: 065
     Dates: start: 20210301
  24. METOCLOPRAMIDE. [Suspect]
     Active Substance: METOCLOPRAMIDE
     Indication: PROPHYLAXIS OF NAUSEA AND VOMITING
  25. CYANOCOBALAMIN. [Concomitant]
     Active Substance: CYANOCOBALAMIN
     Dosage: 1 DOSAGE FORM, ONCE A DAY
     Route: 048
  26. CARBOPLATIN. [Suspect]
     Active Substance: CARBOPLATIN
     Indication: ENDOMETRIAL CANCER
     Dosage: CYCLE 1 OF 3?WEEKLY REGIMEN
     Route: 065
     Dates: start: 20210301
  27. PACLITAXEL. [Suspect]
     Active Substance: PACLITAXEL
     Indication: ENDOMETRIAL CANCER
     Dosage: 336 MILLIGRAM (CYCLE 1 OF 3?WEEKLY REGIMEN)
     Route: 065
     Dates: start: 20210301
  28. APIXABAN [Concomitant]
     Active Substance: APIXABAN
     Dosage: 5 MILLIGRAM, TWO TIMES A DAY
     Route: 048
  29. PREGABALIN. [Concomitant]
     Active Substance: PREGABALIN
     Indication: NEURALGIA
     Dosage: 50 MILLIGRAM, TWO TIMES A DAY
     Route: 048

REACTIONS (3)
  - Neutropenic sepsis [Unknown]
  - Acute kidney injury [Recovering/Resolving]
  - Myelosuppression [Recovering/Resolving]

NARRATIVE: CASE EVENT DATE: 202103
